FAERS Safety Report 6635448-8 (Version None)
Quarter: 2010Q1

REPORT INFORMATION
  Report Type: 
  Country: None (occurrence: None)
  Receive Date: 20100315
  Receipt Date: 20090813
  Transmission Date: 20100710
  Serious: No
  Sender: FDA-Public Use
  Company Number: US-ABBOTT-09P-163-0592037-00

PATIENT
  Age: 39 Year
  Sex: Male
  Weight: 86.26 kg

DRUGS (3)
  1. DEPAKOTE [Suspect]
     Indication: BIPOLAR DISORDER
     Dates: start: 20090701
  2. MARIJUANA [Suspect]
     Indication: DRUG USE FOR UNKNOWN INDICATION
     Route: 048
  3. CYMBALTA [Concomitant]
     Indication: DEPRESSION
     Dates: start: 20090701

REACTIONS (3)
  - AMNESIA [None]
  - HALLUCINATION [None]
  - PARANOIA [None]
